FAERS Safety Report 7025127-X (Version None)
Quarter: 2010Q3

REPORT INFORMATION
  Report Type: 
  Country: None (occurrence: None)
  Receive Date: 20100916
  Receipt Date: 20100727
  Transmission Date: 20110219
  Serious: Yes (Other)
  Sender: FDA-Public Use
  Company Number: DKLU1063425

PATIENT

DRUGS (2)
  1. SABRIL [Suspect]
     Indication: INFANTILE SPASMS
  2. SIMETHICONE (DIMETICONE, ACTIVATED) (DROPS) [Suspect]
     Indication: PRODUCT USED FOR UNKNOWN INDICATION

REACTIONS (1)
  - CONVULSION [None]
